FAERS Safety Report 5560161-8 (Version None)
Quarter: 2007Q4

REPORT INFORMATION
  Report Type: 
  Country: None (occurrence: None)
  Receive Date: 20071214
  Receipt Date: 20071024
  Transmission Date: 20080405
  Serious: No
  Sender: FDA-Public Use
  Company Number: US-ABBOTT-07P-163-0422546-00

PATIENT
  Sex: Male
  Weight: 63.56 kg

DRUGS (5)
  1. HUMIRA [Suspect]
     Indication: COLITIS ULCERATIVE
     Route: 058
     Dates: start: 20071010, end: 20071010
  2. HUMIRA [Suspect]
     Dosage: 80MG X1 AND THEN 40MG EVERY OTHER WEEK PEN
     Route: 058
     Dates: start: 20071024
  3. HUMIRA [Suspect]
     Indication: COLITIS ULCERATIVE
     Route: 058
  4. HUMIRA [Suspect]
     Dates: start: 20071024
  5. UNREPORTED MEDICATIONS [Concomitant]
     Indication: DRUG USE FOR UNKNOWN INDICATION

REACTIONS (1)
  - INJECTION SITE PAIN [None]
